FAERS Safety Report 10036704 (Version 1)
Quarter: 2014Q1

REPORT INFORMATION
  Report Type: Spontaneous
  Country: BE (occurrence: BE)
  Receive Date: 20140326
  Receipt Date: 20140326
  Transmission Date: 20141002
  Serious: Yes (Other)
  Sender: FDA-Public Use
  Company Number: BE-AMGEN-BELSP2014020097

PATIENT
  Age: 67 Year
  Sex: Male

DRUGS (4)
  1. XGEVA [Suspect]
     Indication: METASTASES TO BONE
     Dosage: UNK
     Route: 065
     Dates: start: 201302
  2. CISPLATIN [Concomitant]
  3. PEMETREXED [Concomitant]
  4. TAXOTERE [Concomitant]

REACTIONS (1)
  - Osteonecrosis of jaw [Unknown]
